FAERS Safety Report 7361968-7 (Version None)
Quarter: 2011Q1

REPORT INFORMATION
  Report Type: 
  Country: None (occurrence: None)
  Receive Date: 20110318
  Receipt Date: 20110301
  Transmission Date: 20110831
  Serious: Yes (Other)
  Sender: FDA-Public Use
  Company Number: DE-ACTELION-A-US2011-45309

PATIENT

DRUGS (15)
  1. FLUCONAZOLE [Concomitant]
  2. NOVORAPID [Concomitant]
  3. SERETIDE [Concomitant]
  4. TRACLEER [Concomitant]
     Indication: PULMONARY ARTERIAL HYPERTENSION
     Route: 048
  5. FUROSEMIDE [Concomitant]
  6. COTRIM [Concomitant]
  7. SPIRONOLACTONE [Concomitant]
  8. SILDENAFIL CITRATE [Concomitant]
  9. OXYGEN [Concomitant]
  10. VENTAVIS [Suspect]
     Indication: PULMONARY ARTERIAL HYPERTENSION
     Dosage: 5 UG, 9 TIMES/DAY
     Route: 055
  11. ZELITREX [Concomitant]
  12. PREDNISONE [Concomitant]
  13. OMEPRAZOLE [Concomitant]
  14. CHLORTHALIDONE [Concomitant]
  15. INSULATARD [Concomitant]

REACTIONS (6)
  - EYE HAEMORRHAGE [None]
  - OCULAR HYPERAEMIA [None]
  - MUCOSAL DRYNESS [None]
  - EYE SWELLING [None]
  - COUGH [None]
  - THROAT IRRITATION [None]
